FAERS Safety Report 11883106 (Version 1)
Quarter: 2015Q4

REPORT INFORMATION
  Report Type: Report from Study
  Country: US (occurrence: US)
  Receive Date: 20151231
  Receipt Date: 20151231
  Transmission Date: 20160305
  Serious: Yes (Death, Hospitalization)
  Sender: FDA-Public Use
  Company Number: US-CELGENE-USA-2015124246

PATIENT
  Age: 72 Year
  Sex: Male
  Weight: 75 kg

DRUGS (2)
  1. REVLIMID [Suspect]
     Active Substance: LENALIDOMIDE
     Indication: MYELODYSPLASTIC SYNDROME
     Route: 048
     Dates: start: 20130114, end: 20150928
  2. VIDAZA [Suspect]
     Active Substance: AZACITIDINE
     Indication: MYELODYSPLASTIC SYNDROME
     Route: 041
     Dates: start: 20130114, end: 20151127

REACTIONS (2)
  - Confusional state [Unknown]
  - Multi-organ failure [Fatal]

NARRATIVE: CASE EVENT DATE: 20151209
